FAERS Safety Report 12717942 (Version 1)
Quarter: 2016Q3

REPORT INFORMATION
  Report Type: Report from Study
  Country: CA (occurrence: CA)
  Receive Date: 20160906
  Receipt Date: 20160906
  Transmission Date: 20161109
  Serious: Yes (Hospitalization, Other)
  Sender: FDA-Public Use
  Company Number: CA-AMGEN-CANSL2016118437

PATIENT
  Age: 66 Year
  Sex: Female

DRUGS (1)
  1. ENBREL [Suspect]
     Active Substance: ETANERCEPT
     Indication: PRODUCT USED FOR UNKNOWN INDICATION
     Dosage: UNK
     Route: 065
     Dates: start: 20040919, end: 201606

REACTIONS (8)
  - Cerebrovascular accident [Unknown]
  - Bradycardia [Unknown]
  - Drug effect decreased [Unknown]
  - Heart valve replacement [Unknown]
  - Arthritis [Unknown]
  - Balance disorder [Unknown]
  - Speech disorder [Unknown]
  - Hypertension [Unknown]

NARRATIVE: CASE EVENT DATE: 2015
